FAERS Safety Report 5645344-0 (Version None)
Quarter: 2008Q1

REPORT INFORMATION
  Report Type: 
  Country: None (occurrence: None)
  Receive Date: 20080229
  Receipt Date: 20080225
  Transmission Date: 20080703
  Serious: Yes (Other)
  Sender: FDA-Public Use
  Company Number: B0509455A

PATIENT
  Age: 46 Year
  Sex: Female

DRUGS (3)
  1. AMOXIL [Suspect]
     Indication: KIDNEY INFECTION
     Dosage: 500MG THREE TIMES PER DAY
     Route: 048
     Dates: start: 20080218, end: 20080222
  2. KEPPRA [Concomitant]
     Dosage: 250MG TWICE PER DAY
  3. GABAPENTIN [Concomitant]
     Dosage: 300MG THREE TIMES PER DAY

REACTIONS (1)
  - EPILEPSY [None]
